FAERS Safety Report 7374543-5 (Version None)
Quarter: 2011Q1

REPORT INFORMATION
  Report Type: 
  Country: None (occurrence: None)
  Receive Date: 20110325
  Receipt Date: 20100303
  Transmission Date: 20110831
  Serious: No
  Sender: FDA-Public Use
  Company Number: US-MYLANLABS-2010S1003728

PATIENT
  Age: 33 Year
  Sex: Female

DRUGS (3)
  1. LORTAB [Concomitant]
     Indication: BREAKTHROUGH PAIN
     Dosage: INCREASED TO THREE TO FOUR TABLETS EVERY DAY SINCE 22-FEB-2010.
     Route: 048
  2. XANAX [Concomitant]
     Indication: ANXIETY
     Route: 048
  3. FENTANYL-100 [Suspect]
     Indication: BACK PAIN
     Dosage: Q48HR
     Route: 062
     Dates: start: 20100216

REACTIONS (1)
  - WITHDRAWAL SYNDROME [None]
